FAERS Safety Report 6355017-7 (Version None)
Quarter: 2009Q3

REPORT INFORMATION
  Report Type: 
  Country: None (occurrence: None)
  Receive Date: 20090914
  Receipt Date: 20090901
  Transmission Date: 20100115
  Serious: Yes (Death)
  Sender: FDA-Public Use
  Company Number: B0584172A

PATIENT
  Sex: Female

DRUGS (2)
  1. SERETIDE [Suspect]
     Indication: ASTHMA
     Dosage: 250MCG TWICE PER DAY
     Route: 055
     Dates: start: 20090703, end: 20090706
  2. SULTANOL [Suspect]
     Indication: ASTHMA
     Route: 055
     Dates: start: 20090301

REACTIONS (2)
  - CHEST DISCOMFORT [None]
  - CHEST PAIN [None]
